FAERS Safety Report 23703304 (Version 1)
Quarter: 2024Q2

REPORT INFORMATION
  Report Type: Spontaneous
  Country: US (occurrence: US)
  Receive Date: 20240403
  Receipt Date: 20240403
  Transmission Date: 20240716
  Serious: No
  Sender: FDA-Public Use
  Company Number: US-BIOMARINAP-US-2024-156906

PATIENT

DRUGS (1)
  1. VOXZOGO [Suspect]
     Active Substance: VOSORITIDE
     Indication: Osteochondrodysplasia
     Dosage: 0.56 MILLIGRAM
     Route: 058
     Dates: start: 20231101

REACTIONS (5)
  - Nasopharyngitis [Unknown]
  - Cough [Unknown]
  - Ear pain [Unknown]
  - Vomiting [Unknown]
  - Abdominal pain upper [Unknown]
